FAERS Safety Report 6150873-X (Version None)
Quarter: 2009Q2

REPORT INFORMATION
  Report Type: 
  Country: None (occurrence: None)
  Receive Date: 20090408
  Receipt Date: 20090326
  Transmission Date: 20091009
  Serious: Yes (Hospitalization, Other)
  Sender: FDA-Public Use
  Company Number: 230284K09USA

PATIENT
  Age: 59 Year
  Sex: Female
  Weight: 117 kg

DRUGS (22)
  1. REBIF [Suspect]
     Indication: MULTIPLE SCLEROSIS
     Dosage: 44 MCG; 22 MCG , 3 IN 1 WEEKS, SUBCUTANEOUS
     Route: 058
     Dates: start: 20041201, end: 20081101
  2. TIZANIDINE HCL [Concomitant]
  3. LIPITOR [Concomitant]
  4. BACLOFEN [Concomitant]
  5. LEXAPRO (ESCITALPRAM OXALATE) [Concomitant]
  6. CLONIDINE [Concomitant]
  7. OXYBUTYNIN (OXYBUTYNIN /00538901/) [Concomitant]
  8. CALCIUM (CALCIUM-SANDOZ /00009901/) [Concomitant]
  9. MULTI-VITAMINS [Concomitant]
  10. ASPIRIN [Concomitant]
  11. NASONEX [Concomitant]
  12. ALBUTEROL (SALBUTAMOL /00139501/) [Concomitant]
  13. SINGULAIR (MONTELUKAST /01362601/) [Concomitant]
  14. PRIMIDONE [Concomitant]
  15. RANITIDINE (RANITIDINE /00550801/) [Concomitant]
  16. MEGA OMEGA 3 (FISH OIL) [Concomitant]
  17. IBUPROFEN [Concomitant]
  18. HYDROCHLOROTHIAZIDE [Concomitant]
  19. ADVAIR HFA [Concomitant]
  20. NEURONTIN [Concomitant]
  21. TYLENOL WITH CODEINE (PANADEINE CO) [Concomitant]
  22. PROVIGIL [Concomitant]

REACTIONS (6)
  - ANKLE FRACTURE [None]
  - DIABETES MELLITUS [None]
  - OXYGEN SATURATION DECREASED [None]
  - REFUSAL OF TREATMENT BY PATIENT [None]
  - SLEEP APNOEA SYNDROME [None]
  - STRESS FRACTURE [None]
